FAERS Safety Report 15602977 (Version 1)
Quarter: 2018Q4

REPORT INFORMATION
  Report Type: Spontaneous
  Country: US (occurrence: US)
  Receive Date: 20181109
  Receipt Date: 20181109
  Transmission Date: 20190205
  Serious: No
  Sender: FDA-Public Use
  Company Number: US-MYLANLABS-2018M1079092

PATIENT
  Sex: Female
  Weight: 87 kg

DRUGS (1)
  1. MORPHINE [Suspect]
     Active Substance: MORPHINE
     Indication: PAIN MANAGEMENT
     Dosage: UNK

REACTIONS (2)
  - Rash [Recovered/Resolved]
  - Hypersensitivity [Recovered/Resolved]
